FAERS Safety Report 21866119 (Version 3)
Quarter: 2023Q1

REPORT INFORMATION
  Report Type: Report from Study
  Country: MX (occurrence: MX)
  Receive Date: 20230116
  Receipt Date: 20230331
  Transmission Date: 20230417
  Serious: Yes (Death, Hospitalization, Other)
  Sender: FDA-Public Use
  Company Number: MX-002147023-NVSC2023MX008472

PATIENT
  Age: 64 Year
  Sex: Male
  Weight: 47 kg

DRUGS (7)
  1. SANDOSTATIN LAR DEPOT [Suspect]
     Active Substance: OCTREOTIDE ACETATE
     Indication: Neuroendocrine tumour
     Dosage: 1 DOSAGE FORM OF 20 MG EVERY 28 DAYS
     Route: 030
     Dates: start: 20221105, end: 202212
  2. SANDOSTATIN LAR DEPOT [Suspect]
     Active Substance: OCTREOTIDE ACETATE
     Dosage: 1 DOSAGE FORM, QMO (30 MG)
     Route: 030
     Dates: start: 20221115
  3. SANDOSTATIN LAR DEPOT [Suspect]
     Active Substance: OCTREOTIDE ACETATE
     Dosage: 1 DOSAGE FORM OF 30 MG EVERY 28 DAYS
     Route: 030
     Dates: start: 202212, end: 202302
  4. HUMALOG [Concomitant]
     Active Substance: INSULIN LISPRO
     Indication: Diabetes mellitus
     Dosage: UNK (ONLY WHEN THE PATIENT HAD HIGH GLUCOSE)
     Route: 030
     Dates: start: 202208, end: 202302
  5. PANTOPRAZOLE [Concomitant]
     Active Substance: PANTOPRAZOLE
     Indication: Abdominal discomfort
     Dosage: 1 DOSAGE FORM, QD
     Route: 048
     Dates: start: 202207, end: 202302
  6. PROBIOTICS NOS [Concomitant]
     Active Substance: PROBIOTICS NOS
     Indication: Bacterial colitis
     Dosage: 1 DOSAGE FORM, QD
     Route: 048
     Dates: start: 202301, end: 202302
  7. CINITAPRIDE [Concomitant]
     Active Substance: CINITAPRIDE
     Indication: Abdominal discomfort
     Dosage: 1 DOSAGE FORM, QD
     Route: 048
     Dates: start: 202207, end: 202302

REACTIONS (8)
  - Second primary malignancy [Fatal]
  - Neuroendocrine tumour [Fatal]
  - Diabetic metabolic decompensation [Unknown]
  - Abdominal infection [Recovered/Resolved]
  - Pyrexia [Recovered/Resolved]
  - Eating disorder [Unknown]
  - Abdominal distension [Recovered/Resolved]
  - Abdominal pain [Recovered/Resolved]

NARRATIVE: CASE EVENT DATE: 20221101
